FAERS Safety Report 12797882 (Version 1)
Quarter: 2016Q3

REPORT INFORMATION
  Report Type: Spontaneous
  Country: US (occurrence: US)
  Receive Date: 20160930
  Receipt Date: 20160930
  Transmission Date: 20161109
  Serious: No
  Sender: FDA-Public Use
  Company Number: US-LUPIN PHARMACEUTICALS INC.-E2B_00004969

PATIENT
  Age: 76 Year
  Sex: Male
  Weight: 71.73 kg

DRUGS (2)
  1. CEPHALEXIN CAPSULES USP 500MG [Suspect]
     Active Substance: CEPHALEXIN
     Indication: PROPHYLAXIS
     Route: 048
     Dates: start: 20160219
  2. OXYCODONE + ACETAMINOPHEN [Concomitant]
     Indication: PAIN
     Route: 065

REACTIONS (1)
  - Diarrhoea [Not Recovered/Not Resolved]

NARRATIVE: CASE EVENT DATE: 20160222
